FAERS Safety Report 6102750-8 (Version None)
Quarter: 2009Q1

REPORT INFORMATION
  Report Type: 
  Country: None (occurrence: None)
  Receive Date: 20090304
  Receipt Date: 20090223
  Transmission Date: 20090719
  Serious: Yes (Hospitalization)
  Sender: FDA-Public Use
  Company Number: JM-B.I. PHARMACEUTICALS,INC./RIDGEFIELD-2009-DE-01764GD

PATIENT
  Sex: Male

DRUGS (7)
  1. NEVIRAPINE [Suspect]
     Indication: HIV INFECTION CDC CATEGORY C1
  2. NEVIRAPINE [Suspect]
     Indication: ACQUIRED IMMUNODEFICIENCY SYNDROME
  3. ZIDOVUDINE [Suspect]
     Indication: HIV INFECTION CDC CATEGORY C1
  4. ZIDOVUDINE [Suspect]
     Indication: ACQUIRED IMMUNODEFICIENCY SYNDROME
  5. LAMIVUDINE [Suspect]
     Indication: HIV INFECTION CDC CATEGORY C1
  6. LAMIVUDINE [Suspect]
     Indication: ACQUIRED IMMUNODEFICIENCY SYNDROME
  7. COTRIMOXAZOLE [Concomitant]
     Indication: ANTIFUNGAL PROPHYLAXIS

REACTIONS (2)
  - DISEASE PROGRESSION [None]
  - DISSEMINATED TUBERCULOSIS [None]
